FAERS Safety Report 7426891-8 (Version None)
Quarter: 2011Q2

REPORT INFORMATION
  Report Type: 
  Country: None (occurrence: None)
  Receive Date: 20110420
  Receipt Date: 20110413
  Transmission Date: 20111010
  Serious: Yes (Other)
  Sender: FDA-Public Use
  Company Number: US-BAXTER-2011BH011118

PATIENT
  Age: 69 Year
  Sex: Male

DRUGS (2)
  1. FONDAPARINUX SODIUM [Suspect]
     Indication: THROMBOSIS PROPHYLAXIS
     Route: 065
  2. HEPARIN SODIUM INJECTION [Suspect]
     Indication: THROMBOSIS PROPHYLAXIS
     Route: 058

REACTIONS (4)
  - RENAL FAILURE ACUTE [None]
  - ADRENAL HAEMORRHAGE [None]
  - ACUTE MYOCARDIAL INFARCTION [None]
  - HEPARIN-INDUCED THROMBOCYTOPENIA [None]
